FAERS Safety Report 19734729 (Version 1)
Quarter: 2021Q3

REPORT INFORMATION
  Report Type: Spontaneous
  Country: US (occurrence: US)
  Receive Date: 20210823
  Receipt Date: 20210823
  Transmission Date: 20211014
  Serious: Yes (Other)
  Sender: FDA-Public Use
  Company Number: US-BIOVITRUM-2021US7564

PATIENT
  Age: 15 Year
  Sex: Male

DRUGS (2)
  1. KINERET [Suspect]
     Active Substance: ANAKINRA
     Indication: STILL^S DISEASE
     Dosage: AS NEEDED FOR FLARES
     Route: 058
     Dates: start: 20210331, end: 20210501
  2. SPORANOX [Concomitant]
     Active Substance: ITRACONAZOLE

REACTIONS (3)
  - Condition aggravated [Unknown]
  - Off label use [Recovered/Resolved]
  - Still^s disease [Unknown]

NARRATIVE: CASE EVENT DATE: 20210331
